FAERS Safety Report 7413793-6 (Version None)
Quarter: 2011Q2

REPORT INFORMATION
  Report Type: 
  Country: None (occurrence: None)
  Receive Date: 20110413
  Receipt Date: 20110404
  Transmission Date: 20111010
  Serious: Yes (Hospitalization)
  Sender: FDA-Public Use
  Company Number: FR-MERCK-1104FRA00012

PATIENT
  Age: 37 Year
  Sex: Male

DRUGS (5)
  1. PAROXETINE HYDROCHLORIDE [Concomitant]
     Route: 065
  2. PREGABALIN [Concomitant]
     Route: 065
  3. ISENTRESS [Suspect]
     Indication: HIV INFECTION
     Route: 048
     Dates: start: 20100315
  4. EMTRICITABINE AND TENOFOVIR DISOPROXIL FUMARATE [Concomitant]
     Indication: HIV INFECTION
     Route: 048
  5. CLONAZEPAM [Concomitant]
     Route: 065

REACTIONS (1)
  - BURKITT'S LYMPHOMA [None]
